FAERS Safety Report 5021312-7 (Version None)
Quarter: 2006Q2

REPORT INFORMATION
  Report Type: 
  Country: None (occurrence: None)
  Receive Date: 20060414
  Receipt Date: 20060221
  Transmission Date: 20061013
  Serious: No
  Sender: FDA-Public Use
  Company Number: 2006SP000861

PATIENT
  Age: 69 Year
  Sex: Male
  Weight: 95.2554 kg

DRUGS (13)
  1. LUNESTA [Suspect]
     Indication: INSOMNIA
     Dosage: SEE IMAGE
     Route: 048
     Dates: start: 20050401, end: 20050601
  2. LUNESTA [Suspect]
     Indication: INSOMNIA
     Dosage: SEE IMAGE
     Route: 048
     Dates: start: 20060213, end: 20060213
  3. LUNESTA [Suspect]
     Indication: INSOMNIA
     Dosage: SEE IMAGE
     Route: 048
     Dates: start: 20060214
  4. AMIODARONE [Concomitant]
  5. PRIMIDONE [Concomitant]
  6. ENABLEX [Concomitant]
  7. LOTREL [Concomitant]
  8. ASPIRIN [Concomitant]
  9. WARFARIN SODIUM [Concomitant]
  10. PRAMIPEXOLE [Concomitant]
  11. ATORVASTATIN CALCIUM [Concomitant]
  12. VIAGRA [Concomitant]
  13. TEMAZEPAM [Concomitant]

REACTIONS (3)
  - DRUG INEFFECTIVE [None]
  - DYSGEUSIA [None]
  - INSOMNIA [None]
